FAERS Safety Report 5413529-4 (Version None)
Quarter: 2007Q3

REPORT INFORMATION
  Report Type: 
  Country: None (occurrence: None)
  Receive Date: 20070810
  Receipt Date: 20070731
  Transmission Date: 20080115
  Serious: Yes (Hospitalization)
  Sender: FDA-Public Use
  Company Number: TPA2007A01612

PATIENT
  Age: 88 Year
  Sex: Female
  Weight: 77.1115 kg

DRUGS (11)
  1. ACTOS [Suspect]
     Dosage: 45 MG, 1 IN 1 D, PER ORAL, 3/4 OF A 45 MG TAB, 1 IN 1 D, PER ORAL
     Route: 048
     Dates: start: 20060101, end: 20070101
  2. ACTOS [Suspect]
     Dosage: 45 MG, 1 IN 1 D, PER ORAL, 3/4 OF A 45 MG TAB, 1 IN 1 D, PER ORAL
     Route: 048
     Dates: start: 19990701
  3. UNKNOWN INSULIN (INSULIN) [Suspect]
     Dosage: SLIDING SCALE, SUBCUTANEOUS
     Route: 058
     Dates: start: 20070501
  4. GLUCOSAMINE/CHONDROITIN/MSM (GLUCOSAMINE, CHONDROITIN SULFATE) (CAPSUL [Concomitant]
  5. HYDROCHLOROTHIAZIDE (HYDROCHLOROTHIAZIDE) (TABLETS) [Concomitant]
  6. SYNTHROID [Concomitant]
  7. LEXAPRO [Concomitant]
  8. VYTORIN [Concomitant]
  9. EXELON [Concomitant]
  10. NAMENDA [Concomitant]
  11. UNKNOWN BLOOD PRESSURE MEDICATION (ALL OTHER THERAPEUTIC PRODUCTS) [Concomitant]

REACTIONS (10)
  - BLOOD GLUCOSE DECREASED [None]
  - FALL [None]
  - HEART RATE IRREGULAR [None]
  - HYPOTENSION [None]
  - LOSS OF CONSCIOUSNESS [None]
  - MUSCLE RIGIDITY [None]
  - MYALGIA [None]
  - SELF-MEDICATION [None]
  - TRANSIENT ISCHAEMIC ATTACK [None]
  - TREMOR [None]
